FAERS Safety Report 5767297-7 (Version None)
Quarter: 2008Q2

REPORT INFORMATION
  Report Type: 
  Country: None (occurrence: None)
  Receive Date: 20080612
  Receipt Date: 20080604
  Transmission Date: 20081010
  Serious: Yes (Other)
  Sender: FDA-Public Use
  Company Number: CA-ASTRAZENECA-2008UW11355

PATIENT
  Age: 58 Year
  Sex: Female

DRUGS (3)
  1. ARIMIDEX [Suspect]
     Indication: BREAST CANCER
     Route: 048
     Dates: start: 20060101
  2. FEMARA [Concomitant]
  3. CALCIUM + VITAMIN D [Concomitant]
     Dates: start: 20070101

REACTIONS (4)
  - ABDOMINAL PAIN [None]
  - FATIGUE [None]
  - OSTEOPENIA [None]
  - VITREOUS DETACHMENT [None]
